FAERS Safety Report 12988733 (Version 2)
Quarter: 2017Q1

REPORT INFORMATION
  Report Type: Spontaneous
  Country: US (occurrence: US)
  Receive Date: 20161130
  Receipt Date: 20170217
  Transmission Date: 20170428
  Serious: No
  Sender: FDA-Public Use
  Company Number: US-TAIHO ONCOLOGY INC-EU-2016-03081

PATIENT
  Age: 52 Year
  Sex: Male

DRUGS (3)
  1. LONSURF [Suspect]
     Active Substance: TIPIRACIL HYDROCHLORIDE\TRIFLURIDINE
     Indication: COLON CANCER
     Route: 048
     Dates: start: 20161020
  2. HYDROCODONE [Concomitant]
     Active Substance: HYDROCODONE
     Dosage: NI
  3. TRAMADOL. [Concomitant]
     Active Substance: TRAMADOL
     Dosage: NI

REACTIONS (3)
  - Constipation [Unknown]
  - Diarrhoea [Unknown]
  - Vomiting [Unknown]

NARRATIVE: CASE EVENT DATE: 201611
